FAERS Safety Report 5766810-3 (Version None)
Quarter: 2008Q2

REPORT INFORMATION
  Report Type: 
  Country: None (occurrence: None)
  Receive Date: 20080612
  Receipt Date: 20080606
  Transmission Date: 20081010
  Serious: Yes (Death)
  Sender: FDA-Public Use
  Company Number: PHEH2008US05185

PATIENT
  Sex: Female
  Weight: 44.444 kg

DRUGS (13)
  1. TRILEPTAL [Suspect]
     Indication: NEURALGIA
     Dosage: 300 MG, BID
     Route: 048
  2. OPANA ER [Suspect]
     Indication: PAIN IN EXTREMITY
     Dosage: 10 MG, BID
     Route: 048
  3. LORCET-HD [Suspect]
     Indication: PAIN
     Dosage: 10 MG, Q4H
     Route: 048
  4. LANTUS [Suspect]
     Indication: TYPE 1 DIABETES MELLITUS
     Dosage: 40 U, QD
     Route: 058
  5. NOVOLOG [Suspect]
     Indication: TYPE 1 DIABETES MELLITUS
     Dosage: 3U TO 18U DAILY
  6. ZONEGRAN [Suspect]
     Dosage: 100 MG, BID
     Route: 048
  7. CYMBALTA [Suspect]
     Indication: DEPRESSION
     Dosage: 90 MG, QD
     Route: 048
  8. XANAX [Suspect]
     Indication: ANXIETY
     Dosage: 0.5 MG, BID
     Route: 048
  9. PLAVIX [Suspect]
     Indication: THROMBOSIS PROPHYLAXIS
     Dosage: 75 MG, QD
     Route: 048
  10. PREVACID [Suspect]
     Indication: GASTROOESOPHAGEAL REFLUX DISEASE
     Dosage: 2 TABLETS DAILY
     Route: 048
  11. REGLAN [Suspect]
     Indication: IMPAIRED GASTRIC EMPTYING
     Dosage: 10 MG, QID
     Route: 048
  12. HYZAAR [Suspect]
     Indication: HYPERTENSION
     Dosage: 100/12.5, ONE TABLET DAILY
     Route: 048
  13. LYRICA [Suspect]
     Indication: FIBROMYALGIA
     Dosage: 50 MG, TID
     Route: 048

REACTIONS (7)
  - DEATH [None]
  - DRUG INTERACTION [None]
  - MALAISE [None]
  - PAIN IN EXTREMITY [None]
  - RESTLESSNESS [None]
  - TYPE 1 DIABETES MELLITUS [None]
  - VOMITING [None]
